FAERS Safety Report 6895120-6 (Version None)
Quarter: 2010Q3

REPORT INFORMATION
  Report Type: 
  Country: None (occurrence: None)
  Receive Date: 20100727
  Receipt Date: 20100713
  Transmission Date: 20110219
  Serious: Yes (Hospitalization)
  Sender: FDA-Public Use
  Company Number: 2010MA000849

PATIENT
  Age: 41 Year
  Sex: Male

DRUGS (4)
  1. AMLODIPINE BESYLATE [Suspect]
     Indication: HYPERTENSION
     Dosage: 10 MG;PO
     Route: 048
     Dates: start: 20100611, end: 20100623
  2. FELODIPINE [Concomitant]
  3. RAMIPRIL [Concomitant]
  4. PREV MEDS [Concomitant]

REACTIONS (1)
  - HEPATITIS [None]
